FAERS Safety Report 9849991 (Version 1)
Quarter: 2014Q1

REPORT INFORMATION
  Report Type: Spontaneous
  Country: US (occurrence: None)
  Receive Date: 20140127
  Receipt Date: 20140127
  Transmission Date: 20141002
  Serious: Yes (Other)
  Sender: FDA-Public Use
  Company Number: None

PATIENT
  Age: 59 Year
  Sex: Female
  Weight: 102.06 kg

DRUGS (1)
  1. NORCO [Suspect]
     Indication: ARTHRALGIA
     Dosage: AS NEEDED TAKEN BY MOUTH
     Route: 048

REACTIONS (5)
  - Hypersensitivity [None]
  - Chest pain [None]
  - Fatigue [None]
  - Reaction to colouring [None]
  - Drug effect decreased [None]
